FAERS Safety Report 4693697-2 (Version None)
Quarter: 2005Q2

REPORT INFORMATION
  Report Type: 
  Country: None (occurrence: None)
  Receive Date: 20050615
  Receipt Date: 20050603
  Transmission Date: 20051028
  Serious: Yes (Hospitalization, Other)
  Sender: FDA-Public Use
  Company Number: 2005060628

PATIENT
  Sex: Female

DRUGS (4)
  1. BEXTRA [Suspect]
     Indication: ILL-DEFINED DISORDER
     Dosage: 10 MG (10 MG, 1 IN 1 D)
     Dates: end: 20050301
  2. CHOLESTEROL [Concomitant]
  3. PROTONIX [Concomitant]
  4. NORVASC [Concomitant]

REACTIONS (13)
  - ANAEMIA [None]
  - AORTIC THROMBOSIS [None]
  - CARDIAC ARREST [None]
  - CEREBROVASCULAR ACCIDENT [None]
  - DIFFICULTY IN WALKING [None]
  - DIZZINESS [None]
  - FUNGAL INFECTION [None]
  - GASTRITIS EROSIVE [None]
  - HAEMORRHAGE [None]
  - HYPERTENSION [None]
  - MYOCARDIAL INFARCTION [None]
  - PRURITUS [None]
  - SYNCOPE [None]
